FAERS Safety Report 7991709-1 (Version None)
Quarter: 2011Q4

REPORT INFORMATION
  Report Type: 
  Country: None (occurrence: None)
  Receive Date: 20111219
  Receipt Date: 20111208
  Transmission Date: 20120403
  Serious: Yes (Death)
  Sender: FDA-Public Use
  Company Number: PHHY2011DE108387

PATIENT
  Sex: Female
  Weight: 69 kg

DRUGS (47)
  1. LEUPROLIDE ACETATE [Concomitant]
     Dosage: 11.25 MG / 3 MONTHS
     Dates: start: 20101026
  2. DOCETAXEL [Concomitant]
     Dosage: 65 MG,
     Dates: start: 20101214, end: 20101214
  3. DOCETAXEL [Concomitant]
     Dosage: 65 MG,
     Dates: start: 20110105, end: 20110105
  4. ZOMETA [Suspect]
     Indication: BONE DISORDER
     Dosage: UNK UKN, UNK
     Route: 042
     Dates: start: 20101209, end: 20111115
  5. MORPHINE [Concomitant]
     Dosage: 300 MG / DAY
     Route: 048
  6. CETIRIZINE [Concomitant]
     Dosage: 30 MG,/ DAY
     Route: 048
  7. EMEND [Concomitant]
     Dosage: 125 MG/ DAY
     Route: 048
  8. METHOTREXATE [Concomitant]
     Dosage: 57 MG
     Dates: start: 20110429, end: 20110429
  9. METOCLOPRAMIDE [Concomitant]
     Dosage: 5 MG,/ DAY
     Route: 048
  10. MORPHINE [Concomitant]
     Dosage: 90 MG,/ DAY
     Route: 048
  11. ACETAMINOPHEN [Concomitant]
     Dosage: 3000 MG / DAY
     Route: 048
  12. DOCETAXEL [Concomitant]
     Dosage: 65 MG
     Dates: start: 20101220, end: 20101220
  13. METHOTREXATE [Concomitant]
     Dosage: 57 MG,
     Dates: start: 20110311, end: 20110311
  14. METHOTREXATE [Concomitant]
     Dosage: 57 MG
     Dates: start: 20110610, end: 20110610
  15. NOVANTRONE [Concomitant]
     Dosage: 22 MG,
     Dates: start: 20110127, end: 20110127
  16. FORTECORTIN [Concomitant]
     Dosage: 6 MG,/ DAY
     Route: 048
  17. MEDROXYPROGESTERONE ACETATE [Concomitant]
     Dosage: 250 MG,
     Dates: start: 20110531
  18. MEDROXYPROGESTERONE ACETATE [Concomitant]
     Dosage: 500 MG,
  19. ZOLADEX [Concomitant]
     Dosage: 11.4 MG/ 3 MONTHS
     Route: 058
     Dates: start: 20110116
  20. VERGENTAN [Concomitant]
     Dosage: 150 MG / DAY
     Route: 048
  21. RANITIDINE HCL [Concomitant]
     Dosage: 300 MG/ DAY
     Route: 048
  22. METHOTREXATE [Concomitant]
     Dosage: 57 MG,
     Dates: start: 20110218, end: 20110218
  23. NOVANTRONE [Concomitant]
     Dosage: 22 MG
     Dates: start: 20110218, end: 20110218
  24. NOVANTRONE [Concomitant]
     Dosage: 22 MG,
     Dates: start: 20110520, end: 20110520
  25. ENOXAPARIN SODIUM [Concomitant]
     Dosage: 40 MG/ DAY
     Route: 058
  26. FEMARA [Suspect]
     Dosage: UNK UKN, UNK
     Dates: start: 20101210, end: 20101213
  27. FEMARA [Suspect]
     Dosage: UNK UKN, UNK
     Dates: start: 20110616
  28. MORPHINE [Concomitant]
     Indication: PAIN
     Dosage: 60 MG,/ DAY
     Route: 048
  29. MORPHINE [Concomitant]
     Dosage: 30 MG/ DAY
     Route: 048
  30. GRANISETRON [Concomitant]
     Dosage: 2 MG, / DAY
     Route: 048
  31. MORPHINE SULFATE [Concomitant]
     Dosage: 100 MG / DAY
     Route: 048
  32. DOCETAXEL [Concomitant]
     Dosage: 65 MG,
     Dates: start: 20110112, end: 20110112
  33. METHOTREXATE [Concomitant]
     Dosage: 57  MG
     Dates: start: 20110127, end: 20110127
  34. METHOTREXATE [Concomitant]
     Dosage: 57 MG,
     Dates: start: 20110404, end: 20110404
  35. METHOTREXATE [Concomitant]
     Dosage: 57 MG
     Dates: start: 20110520, end: 20110520
  36. NOVANTRONE [Concomitant]
     Dosage: 22 MG
     Dates: start: 20110429, end: 20110429
  37. MEDROXYPROGESTERONE ACETATE [Concomitant]
     Dosage: 250 MG,
     Dates: start: 20110228, end: 20110520
  38. BISOPROLOL FUMARATE [Concomitant]
     Dosage: 2.5 MG, /DAY
     Route: 048
     Dates: start: 20111121
  39. MORPHINE [Concomitant]
     Dosage: 120 MG/ DAY
     Route: 048
  40. PANTOPRAZOLE [Concomitant]
     Dosage: 40 MG,/ DAY
     Route: 048
  41. MORPHINE SULFATE [Concomitant]
     Dosage: 70 MG, / DAY
  42. DOCETAXEL [Concomitant]
     Dosage: 65 MG
     Dates: start: 20110121, end: 20110121
  43. NOVANTRONE [Concomitant]
     Dosage: 22 MG
     Dates: start: 20110311, end: 20110311
  44. NOVANTRONE [Concomitant]
     Dosage: 22 MG,
     Dates: start: 20110404, end: 20110404
  45. NOVANTRONE [Concomitant]
     Dosage: 22 MG
     Dates: start: 20110610, end: 20110610
  46. FASLODEX [Concomitant]
     Dosage: 500 MG
     Dates: start: 20111020, end: 20111020
  47. NEULASTA [Concomitant]
     Dosage: 60 MG,/ DAY
     Route: 058

REACTIONS (8)
  - NEOPLASM MALIGNANT [None]
  - HEPATIC NEOPLASM MALIGNANT [None]
  - TUMOUR MARKER INCREASED [None]
  - NEOPLASM PROGRESSION [None]
  - GENERAL PHYSICAL HEALTH DETERIORATION [None]
  - PERISTALSIS VISIBLE [None]
  - OCULAR ICTERUS [None]
  - HEPATOMEGALY [None]
